FAERS Safety Report 7780386-0 (Version None)
Quarter: 2011Q3

REPORT INFORMATION
  Report Type: 
  Country: None (occurrence: None)
  Receive Date: 20110927
  Receipt Date: 20101209
  Transmission Date: 20111222
  Serious: Yes (Other)
  Sender: FDA-Public Use
  Company Number: US-ASTRAZENECA-2008UW25769

PATIENT
  Age: 56 Year
  Sex: Male

DRUGS (1)
  1. SEROQUEL [Suspect]
     Route: 048

REACTIONS (8)
  - DRUG DOSE OMISSION [None]
  - WEIGHT INCREASED [None]
  - INSOMNIA [None]
  - EMOTIONAL DISORDER [None]
  - DEPRESSION [None]
  - MALAISE [None]
  - NIGHTMARE [None]
  - SUICIDAL IDEATION [None]
